FAERS Safety Report 20125512 (Version 2)
Quarter: 2023Q2

REPORT INFORMATION
  Report Type: Spontaneous
  Country: US (occurrence: US)
  Receive Date: 20211129
  Receipt Date: 20230522
  Transmission Date: 20230722
  Serious: Yes (Other)
  Sender: FDA-Public Use
  Company Number: US-PFIZER INC-2021013417

PATIENT
  Age: 93 Year
  Sex: Male

DRUGS (2)
  1. VYNDAMAX [Suspect]
     Active Substance: TAFAMIDIS
     Dosage: 61 MG
  2. HALAZONE [Concomitant]
     Active Substance: HALAZONE

REACTIONS (1)
  - Dementia [Unknown]
